FAERS Safety Report 18437363 (Version 3)
Quarter: 2021Q1

REPORT INFORMATION
  Report Type: Spontaneous
  Country: US (occurrence: US)
  Receive Date: 20201028
  Receipt Date: 20210111
  Transmission Date: 20210419
  Serious: No
  Sender: FDA-Public Use
  Company Number: US-GILEAD-2020-0501649

PATIENT
  Age: 40 Year
  Sex: Female
  Weight: 70.66 kg

DRUGS (5)
  1. NORVIR [Concomitant]
     Active Substance: RITONAVIR
  2. GENVOYA [Suspect]
     Active Substance: COBICISTAT\ELVITEGRAVIR\EMTRICITABINE\TENOFOVIR ALAFENAMIDE FUMARATE
     Indication: HIV INFECTION
     Dosage: UNK
     Route: 048
     Dates: start: 20200914
  3. DEPO?PROVERA [Interacting]
     Active Substance: MEDROXYPROGESTERONE ACETATE
     Indication: CONTRACEPTION
     Dosage: UNK
     Route: 065
  4. LAMIVUDINE. [Concomitant]
     Active Substance: LAMIVUDINE
  5. ATAZANAVIR. [Concomitant]
     Active Substance: ATAZANAVIR

REACTIONS (3)
  - Drug interaction [Recovered/Resolved]
  - Arthralgia [Unknown]
  - Arthralgia [Unknown]

NARRATIVE: CASE EVENT DATE: 20201107
